FAERS Safety Report 5893305-9 (Version None)
Quarter: 2008Q3

REPORT INFORMATION
  Report Type: 
  Country: None (occurrence: None)
  Receive Date: 20080923
  Receipt Date: 20080912
  Transmission Date: 20090109
  Serious: Yes (Hospitalization)
  Sender: FDA-Public Use
  Company Number: B0524922A

PATIENT
  Age: 56 Year
  Sex: Male
  Weight: 74 kg

DRUGS (4)
  1. KIVEXA [Suspect]
     Indication: HIV INFECTION
     Route: 065
     Dates: start: 20080124, end: 20080515
  2. INVIRASE [Concomitant]
     Dosage: 500MG FOUR TIMES PER DAY
  3. NORVIR [Concomitant]
  4. ESTIVAN [Concomitant]
     Route: 065
     Dates: start: 20080306

REACTIONS (5)
  - BURKITT'S LYMPHOMA [None]
  - COUGH [None]
  - MUCOSAL INFLAMMATION [None]
  - PRURITUS [None]
  - VOMITING [None]
